FAERS Safety Report 25482449 (Version 1)
Quarter: 2025Q2

REPORT INFORMATION
  Report Type: Spontaneous
  Country: AU (occurrence: AU)
  Receive Date: 20250626
  Receipt Date: 20250626
  Transmission Date: 20250716
  Serious: Yes (Life-Threatening, Hospitalization)
  Sender: AMGEN
  Company Number: AU-AMGEN-AUSSP2025121701

PATIENT
  Sex: Male
  Weight: 82 kg

DRUGS (1)
  1. ADALIMUMAB [Suspect]
     Active Substance: ADALIMUMAB
     Indication: Crohn^s disease
     Route: 065

REACTIONS (2)
  - Crohn^s disease [Unknown]
  - Unevaluable event [Unknown]
